FAERS Safety Report 9684219 (Version 3)
Quarter: 2013Q4

REPORT INFORMATION
  Report Type: Report from Study
  Country: US (occurrence: US)
  Receive Date: 20131112
  Receipt Date: 20131202
  Transmission Date: 20140711
  Serious: Yes (Hospitalization)
  Sender: FDA-Public Use
  Company Number: US-GLAXOSMITHKLINE-A1048487A

PATIENT
  Age: 58 Year
  Sex: Female
  Weight: 74 kg

DRUGS (2)
  1. TRAMETINIB [Suspect]
     Indication: MALIGNANT NEOPLASM OF EYE
     Dosage: 1.5MG PER DAY
     Route: 048
     Dates: start: 20131016
  2. GSK2141795 [Suspect]
     Indication: MALIGNANT NEOPLASM OF EYE
     Dosage: 50MG PER DAY
     Route: 048
     Dates: start: 20131016

REACTIONS (1)
  - Posterior reversible encephalopathy syndrome [Recovered/Resolved]
